FAERS Safety Report 13986165 (Version 2)
Quarter: 2017Q4

REPORT INFORMATION
  Report Type: Report from Study
  Country: BR (occurrence: BR)
  Receive Date: 20170919
  Receipt Date: 20171017
  Transmission Date: 20180321
  Serious: Yes (Hospitalization, Other)
  Sender: FDA-Public Use
  Company Number: PHHY2014BR107994

PATIENT
  Sex: Female
  Weight: 110 kg

DRUGS (5)
  1. DIOVAN [Suspect]
     Active Substance: VALSARTAN
     Indication: HYPERTENSION
     Dosage: 1 TABLET (80 MG) QD, AT NIGHT
     Route: 048
  2. DIOVAN [Suspect]
     Active Substance: VALSARTAN
     Dosage: 1 DF (80 MG), BID (AFTER LUNCH AND AT NIGHT)
     Route: 048
  3. EXFORGE HCT [Suspect]
     Active Substance: AMLODIPINE BESYLATE\HYDROCHLOROTHIAZIDE\VALSARTAN
     Indication: PRODUCT USED FOR UNKNOWN INDICATION
     Dosage: 1 DF (AMLODIPINE 5 MG, HYDROCHLOROTHIAZIDE 12.5 MG, VALSARTAN 160 MG), QD
     Route: 048
  4. DAFLON (DIOSMIN) [Concomitant]
     Active Substance: DIOSMIN
     Indication: PERIPHERAL VASCULAR DISORDER
     Dosage: 500 MG, UNK
     Route: 065
  5. DIOVAN HCT [Suspect]
     Active Substance: HYDROCHLOROTHIAZIDE\VALSARTAN
     Indication: HYPERTENSION
     Dosage: 1 DF (HYDROCHLOROTHIAZIDE 12.5 MG AND VALSARTAN 80 MG) QD, IN THE MORNING
     Route: 065

REACTIONS (13)
  - Productive cough [Unknown]
  - Varicose vein [Unknown]
  - Oedema peripheral [Recovering/Resolving]
  - Sciatica [Unknown]
  - Boredom [Recovering/Resolving]
  - Emotional disorder [Unknown]
  - Pulmonary mass [Unknown]
  - Osteoarthritis [Recovering/Resolving]
  - Cholecystitis [Recovering/Resolving]
  - Joint swelling [Recovering/Resolving]
  - Influenza [Recovering/Resolving]
  - Malaise [Unknown]
  - Blood pressure increased [Recovering/Resolving]
